FAERS Safety Report 18701264 (Version 1)
Quarter: 2021Q1

REPORT INFORMATION
  Report Type: Spontaneous
  Country: US (occurrence: US)
  Receive Date: 20210105
  Receipt Date: 20210105
  Transmission Date: 20210419
  Serious: Yes (Other)
  Sender: FDA-Public Use
  Company Number: US-TEVA-2020-US-1864407

PATIENT
  Age: 77 Year
  Sex: Female

DRUGS (18)
  1. MECLIZINE HCL [Concomitant]
     Active Substance: MECLIZINE HYDROCHLORIDE
     Dosage: 25 MG
     Route: 048
  2. D3 HIGH POTENCY [Concomitant]
     Dosage: 125 MCG, 5000 UT
     Route: 048
  3. LEVOTHYROXINE SODIUM. [Concomitant]
     Active Substance: LEVOTHYROXINE SODIUM
     Dosage: 100 MCG
     Route: 048
  4. ASPIRIN ADULT [Concomitant]
     Dosage: 325 MG
     Route: 048
  5. CALCIUM 600 + D [Concomitant]
     Active Substance: CALCIUM\VITAMIN D
     Dosage: 600?200 MG UNIT
     Route: 048
  6. CLONIDINE HCL [Concomitant]
     Active Substance: CLONIDINE HYDROCHLORIDE
     Dosage: 0.1 MG
     Route: 048
  7. AUSTEDO [Suspect]
     Active Substance: DEUTETRABENAZINE
     Indication: TARDIVE DYSKINESIA
     Dosage: 12 MILLIGRAM DAILY;
     Route: 048
     Dates: start: 20201221, end: 20201224
  8. BUTALBITAL?ACETAMINOPHEN [Concomitant]
     Dosage: 50?325 MG
     Route: 048
  9. FLUTICASONE PROPIONATE. [Concomitant]
     Active Substance: FLUTICASONE PROPIONATE
     Dosage: 50 MCG/ACT
     Route: 045
  10. VITAMIN B12 [Concomitant]
     Active Substance: CYANOCOBALAMIN
     Dosage: 1000 MCG
     Route: 048
  11. OMPERAZOLE [Concomitant]
     Active Substance: OMEPRAZOLE
     Dosage: 40 MG
     Route: 048
  12. GABAPENTIN. [Concomitant]
     Active Substance: GABAPENTIN
     Dosage: 100 MG
     Route: 048
  13. TRAMADOL HCL [Concomitant]
     Active Substance: TRAMADOL HYDROCHLORIDE
     Dosage: 50 MG
     Route: 048
  14. IPRATROPIUM BROMIDE. [Concomitant]
     Active Substance: IPRATROPIUM BROMIDE
     Dosage: 0.03 %
     Route: 045
  15. MELATONIN [Concomitant]
     Active Substance: MELATONIN
     Dosage: 5 MG
     Route: 048
  16. DESVENLAFAXINE ER [Concomitant]
     Active Substance: DESVENLAFAXINE
     Dosage: 24 HOURS, 50 MG
     Route: 048
  17. PRAVASTATIN SODIUM. [Concomitant]
     Active Substance: PRAVASTATIN SODIUM
     Dosage: 40 MG
     Route: 048
  18. ATENOLOL. [Concomitant]
     Active Substance: ATENOLOL
     Dosage: 25 MG
     Route: 048

REACTIONS (4)
  - Blood pressure increased [Unknown]
  - Tongue discolouration [Not Recovered/Not Resolved]
  - Dizziness [Recovering/Resolving]
  - Swollen tongue [Not Recovered/Not Resolved]

NARRATIVE: CASE EVENT DATE: 20201223
